FAERS Safety Report 6292105-8 (Version None)
Quarter: 2009Q3

REPORT INFORMATION
  Report Type: 
  Country: None (occurrence: None)
  Receive Date: 20090731
  Receipt Date: 20070516
  Transmission Date: 20100115
  Serious: Yes (Hospitalization, Other)
  Sender: FDA-Public Use
  Company Number: US-ASTRAZENECA-2006UW25375

PATIENT
  Age: 22 Year
  Sex: Male
  Weight: 94.3 kg

DRUGS (9)
  1. SEROQUEL [Suspect]
     Indication: BIPOLAR DISORDER
     Route: 048
     Dates: start: 20020101
  2. SEROQUEL [Suspect]
     Dosage: 100 - 400 MG
     Route: 048
     Dates: start: 20050810
  3. HALDOL [Suspect]
     Route: 048
     Dates: start: 20020101
  4. ZYPREXA [Suspect]
     Dosage: 5 - 20 MG
     Route: 048
     Dates: start: 20020101
  5. GEODON [Concomitant]
     Dosage: 40 - 160 MG
     Route: 048
     Dates: start: 20021007
  6. DEPAKOTE [Concomitant]
     Dosage: 250 - 3000 MG
     Route: 048
     Dates: start: 20030630, end: 20030814
  7. CELEXA [Concomitant]
     Dosage: 40 - 60 MG
     Route: 048
     Dates: start: 20020101, end: 20060405
  8. RISPERDAL [Concomitant]
     Dosage: 2 - 3 MG
     Route: 048
     Dates: start: 20021007, end: 20060405
  9. TRILEPTAL [Concomitant]
     Route: 048
     Dates: start: 20050101

REACTIONS (7)
  - DIABETES MELLITUS [None]
  - MENTAL DISORDER [None]
  - NEUROLEPTIC MALIGNANT SYNDROME [None]
  - OVERDOSE [None]
  - PANCREATITIS [None]
  - SCHIZOPHRENIA [None]
  - TARDIVE DYSKINESIA [None]
